FAERS Safety Report 9442785 (Version 1)
Quarter: 2013Q3

REPORT INFORMATION
  Report Type: Spontaneous
  Country: US (occurrence: US)
  Receive Date: 20130806
  Receipt Date: 20130806
  Transmission Date: 20140515
  Serious: No
  Sender: FDA-Public Use
  Company Number: US-ABBOTT-12P-163-0972211-00

PATIENT
  Sex: Male
  Weight: 108.96 kg

DRUGS (1)
  1. DEPAKOTE ER [Suspect]
     Indication: MANIA
     Route: 048
     Dates: start: 201205

REACTIONS (3)
  - Orgasmic sensation decreased [Not Recovered/Not Resolved]
  - Erectile dysfunction [Not Recovered/Not Resolved]
  - Gastrointestinal disorder [Not Recovered/Not Resolved]
